FAERS Safety Report 19563128 (Version 3)
Quarter: 2021Q3

REPORT INFORMATION
  Report Type: Spontaneous
  Country: AU (occurrence: AU)
  Receive Date: 20210716
  Receipt Date: 20210805
  Transmission Date: 20211014
  Serious: Yes (Death, Other)
  Sender: FDA-Public Use
  Company Number: NVSC2021AU129370

PATIENT
  Age: 57 Year

DRUGS (1)
  1. RIBOCICLIB. [Suspect]
     Active Substance: RIBOCICLIB
     Indication: BREAST CANCER
     Dosage: 400 MG, QD (CEASED AT 2 WEEKS)
     Route: 048
     Dates: start: 20210303, end: 20210322

REACTIONS (4)
  - Hepatic failure [Fatal]
  - Ascites [Unknown]
  - Liver function test increased [Unknown]
  - Gastrointestinal haemorrhage [Unknown]

NARRATIVE: CASE EVENT DATE: 20210330
